FAERS Safety Report 8240738-1 (Version None)
Quarter: 2012Q1

REPORT INFORMATION
  Report Type: 
  Country: None (occurrence: None)
  Receive Date: 20120328
  Receipt Date: 20120325
  Transmission Date: 20120608
  Serious: Yes (Death, Other)
  Sender: FDA-Public Use
  Company Number: DE-GENZYME-FLUD-1001435

PATIENT
  Sex: Male
  Weight: 78 kg

DRUGS (4)
  1. FLUDARA [Suspect]
     Indication: CHRONIC LYMPHOCYTIC LEUKAEMIA
     Dosage: 43 MG, QD; DAYS 1-3
     Route: 042
     Dates: start: 20120102, end: 20120208
  2. CYCLOPHOSPHAMIDE [Suspect]
     Indication: CHRONIC LYMPHOCYTIC LEUKAEMIA
     Dosage: 360 MG, QD; DAYS 1-3
     Route: 042
     Dates: start: 20120102, end: 20120208
  3. METOCLOPRAMIDE [Concomitant]
     Indication: NAUSEA
     Dosage: DROPS 3X20, QD
     Route: 065
  4. DIPYRONE TAB [Concomitant]
     Indication: PAIN
     Dosage: 500 MG/ML DROPS, QD 3X30
     Route: 065

REACTIONS (4)
  - CHRONIC LYMPHOCYTIC LEUKAEMIA [None]
  - EXTREMITY NECROSIS [None]
  - SKIN NECROSIS [None]
  - BLISTER [None]
